FAERS Safety Report 9378174 (Version 1)
Quarter: 2013Q3

REPORT INFORMATION
  Report Type: Spontaneous
  Country: US (occurrence: US)
  Receive Date: 20130701
  Receipt Date: 20130701
  Transmission Date: 20140515
  Serious: Yes (Other)
  Sender: FDA-Public Use
  Company Number: US-GLAXOSMITHKLINE-B0903609A

PATIENT
  Age: 62 Year
  Sex: Female

DRUGS (2)
  1. PAROXETINE [Suspect]
     Indication: ANXIETY
     Dosage: 10MG PER DAY
     Route: 065
  2. ZOLPIDEM [Suspect]
     Indication: INSOMNIA
     Dosage: 10MG AT NIGHT
     Route: 065

REACTIONS (21)
  - Homicide [Unknown]
  - Drug interaction [Unknown]
  - Insomnia [Unknown]
  - Memory impairment [Unknown]
  - Aggression [Unknown]
  - Confusional state [Unknown]
  - Abnormal behaviour [Unknown]
  - Overdose [Unknown]
  - Self injurious behaviour [Unknown]
  - Suicidal ideation [Unknown]
  - Delirium [Unknown]
  - Disorientation [Unknown]
  - Consciousness fluctuating [Unknown]
  - Cognitive disorder [Unknown]
  - Psychotic behaviour [Unknown]
  - Dissociation [Unknown]
  - Emotional disorder [Unknown]
  - Dreamy state [Unknown]
  - Amnesia [Unknown]
  - Major depression [Unknown]
  - Agitation [Unknown]
